FAERS Safety Report 5625674-9 (Version None)
Quarter: 2008Q1

REPORT INFORMATION
  Report Type: 
  Country: None (occurrence: None)
  Receive Date: 20080214
  Receipt Date: 20080205
  Transmission Date: 20080703
  Serious: Yes (Other)
  Sender: FDA-Public Use
  Company Number: US-JNJFOC-20080201934

PATIENT
  Age: 73 Year
  Sex: Female

DRUGS (2)
  1. EXTRA STRENGTH TYLENOL [Suspect]
     Indication: MUSCULOSKELETAL DISCOMFORT
  2. EXTRA STRENGTH TYLENOL [Suspect]
     Indication: ARTHRITIS

REACTIONS (2)
  - GASTROINTESTINAL HAEMORRHAGE [None]
  - REACTION TO DRUG EXCIPIENTS [None]
